FAERS Safety Report 8854900 (Version 2)
Quarter: 2012Q4

REPORT INFORMATION
  Report Type: Report from Study
  Country: US (occurrence: US)
  Receive Date: 20121023
  Receipt Date: 20121220
  Transmission Date: 20130627
  Serious: Yes (Death, Hospitalization)
  Sender: FDA-Public Use
  Company Number: US-ASTELLAS-2012US010304

PATIENT
  Age: 86 Year
  Sex: Male

DRUGS (1)
  1. ERLOTINIB TABLET [Suspect]
     Indication: LUNG NEOPLASM MALIGNANT
     Dosage: 150 mg, UID/QD
     Route: 048
     Dates: start: 20120216, end: 20120416

REACTIONS (5)
  - Malignant neoplasm progression [Fatal]
  - Pneumonia [Unknown]
  - Malignant pleural effusion [Unknown]
  - Renal failure chronic [Unknown]
  - Metastases to central nervous system [Unknown]
